FAERS Safety Report 7505631-8 (Version None)
Quarter: 2011Q2

REPORT INFORMATION
  Report Type: 
  Country: None (occurrence: None)
  Receive Date: 20110526
  Receipt Date: 20110518
  Transmission Date: 20111010
  Serious: Yes (Congenital Anomaly, Other)
  Sender: FDA-Public Use
  Company Number: US-PFIZER INC-2011109213

PATIENT
  Sex: Female

DRUGS (1)
  1. DEPO-PROVERA [Suspect]
     Indication: CONTRACEPTION
     Dosage: UNK
     Route: 064

REACTIONS (5)
  - THYROID DISORDER [None]
  - DRUG EXPOSURE DURING PREGNANCY [None]
  - ELECTROLYTE IMBALANCE [None]
  - CONGENITAL ANOMALY [None]
  - LIVER FUNCTION TEST ABNORMAL [None]
